FAERS Safety Report 8424109-0 (Version None)
Quarter: 2012Q2

REPORT INFORMATION
  Report Type: 
  Country: None (occurrence: None)
  Receive Date: 20120608
  Receipt Date: 20110228
  Transmission Date: 20120825
  Serious: No
  Sender: FDA-Public Use
  Company Number: US-ASTRAZENECA-2011SE25668

PATIENT
  Age: 15819 Day
  Sex: Female

DRUGS (1)
  1. PULMICORT [Suspect]
     Indication: ASTHMA
     Dosage: 1-2X
     Route: 055
     Dates: start: 20091021

REACTIONS (2)
  - CHEST DISCOMFORT [None]
  - COUGH [None]
